FAERS Safety Report 6343234-1 (Version None)
Quarter: 2009Q3

REPORT INFORMATION
  Report Type: 
  Country: None (occurrence: None)
  Receive Date: 20090908
  Receipt Date: 20090826
  Transmission Date: 20100115
  Serious: Yes (Other)
  Sender: FDA-Public Use
  Company Number: PHHY2009MX12731

PATIENT
  Age: 50 Year
  Sex: Female

DRUGS (2)
  1. ACLASTA [Suspect]
     Indication: OSTEOPOROSIS
     Dosage: 5 MG, UNK
     Dates: start: 20090304
  2. DICLOFENAC [Concomitant]
     Indication: PAIN
     Dosage: UNK
     Dates: start: 20090101

REACTIONS (7)
  - BONE PAIN [None]
  - CHILLS [None]
  - EAR INFECTION [None]
  - MYALGIA [None]
  - PAIN IN EXTREMITY [None]
  - PHARYNGITIS [None]
  - PYREXIA [None]
